FAERS Safety Report 5726853-2 (Version None)
Quarter: 2008Q2

REPORT INFORMATION
  Report Type: 
  Country: None (occurrence: None)
  Receive Date: 20080502
  Receipt Date: 20080422
  Transmission Date: 20081010
  Serious: Yes (Other)
  Sender: FDA-Public Use
  Company Number: GR-PFIZER INC-2008035958

PATIENT
  Age: 52 Year
  Sex: Male

DRUGS (2)
  1. EPANUTIN SUSPENSION [Suspect]
     Indication: EPILEPSY
     Route: 048
  2. KEPPRA [Concomitant]

REACTIONS (5)
  - ALANINE AMINOTRANSFERASE INCREASED [None]
  - BLOOD ALKALINE PHOSPHATASE INCREASED [None]
  - BLOOD GLUCOSE FLUCTUATION [None]
  - DECUBITUS ULCER [None]
  - GAMMA-GLUTAMYLTRANSFERASE INCREASED [None]
